FAERS Safety Report 7439557-5 (Version None)
Quarter: 2011Q2

REPORT INFORMATION
  Report Type: 
  Country: None (occurrence: None)
  Receive Date: 20110427
  Receipt Date: 20110425
  Transmission Date: 20111010
  Serious: Yes (Other)
  Sender: FDA-Public Use
  Company Number: ES-PFIZER INC-2011088388

PATIENT
  Age: 93 Year
  Sex: Male

DRUGS (6)
  1. ZYVOX [Suspect]
     Indication: HIP SURGERY
     Dosage: 0.6 G, 2X/DAY
     Route: 042
     Dates: start: 20101210, end: 20101213
  2. CLEXANE [Suspect]
     Indication: PROPHYLAXIS
     Dosage: 40 MG (4000 IU), 1X/DAY
     Route: 058
     Dates: start: 20101208, end: 20101212
  3. LEVOTHYROXINE [Concomitant]
     Indication: HYPOTHYROIDISM
     Dosage: 80 UG, 1X/DAY
     Route: 048
     Dates: start: 19800101
  4. ENALAPRIL [Concomitant]
     Indication: HYPERTENSION
     Dosage: 20 MG, 1X/DAY
     Route: 048
     Dates: start: 19900101
  5. CEFAZOLIN [Concomitant]
     Indication: PROPHYLAXIS
     Dosage: 1 G, 1X/DAY
     Route: 042
     Dates: start: 20101210, end: 20101210
  6. PANTOPRAZOLE [Concomitant]
     Indication: PROPHYLAXIS
     Dosage: 40 MG, 1X/DAY
     Route: 042
     Dates: start: 20101208

REACTIONS (2)
  - POST PROCEDURAL HAEMATOMA [None]
  - HYPOCOAGULABLE STATE [None]
